FAERS Safety Report 8565282-3 (Version None)
Quarter: 2012Q3

REPORT INFORMATION
  Report Type: 
  Country: None (occurrence: None)
  Receive Date: 20120803
  Receipt Date: 20120723
  Transmission Date: 20120928
  Serious: No
  Sender: FDA-Public Use
  Company Number: US-009507513-1207USA010689

PATIENT

DRUGS (13)
  1. PENICILLIN G BENZATHINE [Suspect]
  2. MACRODANTIN [Suspect]
  3. CIPROFLOXACIN HCL [Suspect]
  4. IODINE [Suspect]
  5. MINOCIN [Suspect]
  6. CELEBREX [Suspect]
  7. NEOMYCIN SULFATE [Suspect]
  8. LIPITOR [Suspect]
  9. PAMELOR [Suspect]
  10. OXSORALEN [Suspect]
  11. NEOSPORIN [Suspect]
  12. GENTAMICIN [Suspect]
  13. ZOCOR [Suspect]
     Route: 048

REACTIONS (1)
  - DRUG HYPERSENSITIVITY [None]
